FAERS Safety Report 7355334-8 (Version None)
Quarter: 2011Q1

REPORT INFORMATION
  Report Type: 
  Country: None (occurrence: None)
  Receive Date: 20110316
  Receipt Date: 20110311
  Transmission Date: 20110831
  Serious: Yes (Death)
  Sender: FDA-Public Use
  Company Number: US-MEDIMMUNE-MEDI-0012371

PATIENT
  Sex: Male
  Weight: 8.428 kg

DRUGS (6)
  1. SYNAGIS [Suspect]
     Indication: RESPIRATORY SYNCYTIAL VIRUS INFECTION
     Route: 030
     Dates: start: 20101118, end: 20110103
  2. ALBUTEROL [Concomitant]
     Indication: WHEEZING
  3. FLOVENT [Concomitant]
     Indication: ASTHMA
     Dates: start: 20101027
  4. ATROVENT [Concomitant]
     Indication: ASTHMA
     Dates: start: 20101124
  5. ALBUTEROL [Concomitant]
  6. RANTAC [Concomitant]
     Route: 048

REACTIONS (1)
  - DEATH [None]
